FAERS Safety Report 9008558 (Version 1)
Quarter: 2013Q1

REPORT INFORMATION
  Report Type: Spontaneous
  Country: US (occurrence: US)
  Receive Date: 20130111
  Receipt Date: 20130111
  Transmission Date: 20140127
  Serious: Yes (Hospitalization, Other)
  Sender: FDA-Public Use
  Company Number: US-PFIZER INC-2013007168

PATIENT
  Age: 8 Decade
  Sex: Male

DRUGS (1)
  1. ZYVOX [Suspect]
     Indication: WOUND INFECTION
     Dosage: UNK

REACTIONS (1)
  - Pseudomembranous colitis [Unknown]
